FAERS Safety Report 19984176 (Version 2)
Quarter: 2022Q1

REPORT INFORMATION
  Report Type: Report from Study
  Country: JP (occurrence: JP)
  Receive Date: 20211022
  Receipt Date: 20220104
  Transmission Date: 20220423
  Serious: Yes (Hospitalization)
  Sender: FDA-Public Use
  Company Number: JP-JNJFOC-A-CH2020-202166

PATIENT
  Age: 67 Year
  Sex: Male
  Weight: 52.4 kg

DRUGS (35)
  1. OPSUMIT [Suspect]
     Active Substance: MACITENTAN
     Indication: Pulmonary hypertension
     Dosage: 10 MG, QD
     Route: 048
     Dates: start: 20180517
  2. UPTRAVI [Suspect]
     Active Substance: SELEXIPAG
     Indication: Pulmonary hypertension
     Dosage: 0.2~1.6MG/TIME
     Route: 048
     Dates: start: 20190619, end: 20191216
  3. UPTRAVI [Suspect]
     Active Substance: SELEXIPAG
     Dosage: 0.2~1.6MG/TIME
     Route: 048
     Dates: start: 201912, end: 201912
  4. UPTRAVI [Suspect]
     Active Substance: SELEXIPAG
     Dosage: 0.2~0.4MG/TIME
     Route: 048
     Dates: start: 20191220
  5. ETHAMBUTOL HYDROCHLORIDE [Suspect]
     Active Substance: ETHAMBUTOL HYDROCHLORIDE
     Indication: Mycobacterium avium complex infection
     Route: 048
     Dates: start: 20180725, end: 20181219
  6. SAMSCA [Concomitant]
     Active Substance: TOLVAPTAN
     Indication: Cardiac failure
     Dosage: 7.5 MG, QD
     Route: 048
     Dates: start: 20171026
  7. EDOXABAN TOSYLATE [Concomitant]
     Active Substance: EDOXABAN TOSYLATE
     Indication: Thrombosis prophylaxis
     Route: 048
     Dates: start: 20180215
  8. FEBUXOSTAT [Concomitant]
     Active Substance: FEBUXOSTAT
     Indication: Hyperuricaemia
     Route: 048
  9. NEXIUM [Concomitant]
     Active Substance: ESOMEPRAZOLE MAGNESIUM
     Indication: Prophylaxis
     Route: 048
     Dates: start: 20180211
  10. EPLERENONE [Concomitant]
     Active Substance: EPLERENONE
     Indication: Cardiac failure
     Route: 048
     Dates: start: 20180502
  11. TRAMCET [Concomitant]
     Active Substance: ACETAMINOPHEN\TRAMADOL
     Indication: Back pain
     Dosage: DOSE UNKNOWNX3
     Route: 048
  12. CARBOCYSTEINE [Concomitant]
     Active Substance: CARBOCYSTEINE
     Indication: Chronic obstructive pulmonary disease
     Route: 048
     Dates: start: 20171122
  13. ADEMPAS [Concomitant]
     Active Substance: RIOCIGUAT
     Indication: Pulmonary hypertension
     Route: 048
     Dates: start: 20180217
  14. BISOPROLOL [Concomitant]
     Active Substance: BISOPROLOL
     Indication: Cardiac failure
     Route: 003
     Dates: start: 20180517, end: 20180521
  15. AZOSEMIDE [Concomitant]
     Active Substance: AZOSEMIDE
     Indication: Cardiac failure
     Route: 048
     Dates: start: 20180404
  16. BISOPROLOL FUMARATE [Concomitant]
     Active Substance: BISOPROLOL FUMARATE
     Indication: Cardiac failure
     Route: 048
     Dates: start: 20180522
  17. SODIUM FERROUS CITRATE [Concomitant]
     Active Substance: SODIUM FERROUS CITRATE
     Indication: Anaemia
     Route: 048
     Dates: start: 20180628, end: 20180926
  18. SODIUM FERROUS CITRATE [Concomitant]
     Active Substance: SODIUM FERROUS CITRATE
     Route: 048
     Dates: start: 20180927
  19. LASIX [Concomitant]
     Active Substance: FUROSEMIDE
     Indication: Pneumonia
     Route: 042
     Dates: start: 20180513, end: 20180517
  20. LASIX [Concomitant]
     Active Substance: FUROSEMIDE
     Indication: Oedema peripheral
     Route: 042
     Dates: start: 20190712, end: 20190715
  21. FLUTICASONE FUROATE\VILANTEROL TRIFENATATE [Concomitant]
     Active Substance: FLUTICASONE FUROATE\VILANTEROL TRIFENATATE
     Indication: Chronic obstructive pulmonary disease
     Route: 055
     Dates: end: 20190327
  22. SPIRIVA [Concomitant]
     Active Substance: TIOTROPIUM BROMIDE MONOHYDRATE
     Indication: Chronic obstructive pulmonary disease
     Route: 055
  23. OXYGEN [Concomitant]
     Active Substance: OXYGEN
     Route: 055
  24. FUROSEMIDE [Concomitant]
     Active Substance: FUROSEMIDE
     Indication: Oedema peripheral
     Route: 048
     Dates: start: 20190703
  25. SODIUM BICARBONATE [Concomitant]
     Active Substance: SODIUM BICARBONATE
     Indication: Vertigo positional
     Route: 042
     Dates: start: 20190714, end: 20190714
  26. PRIMPERAN [Concomitant]
     Active Substance: METOCLOPRAMIDE HYDROCHLORIDE
     Indication: Vertigo positional
     Route: 042
     Dates: start: 20190714, end: 20190714
  27. TRANEXAMIC ACID [Concomitant]
     Active Substance: TRANEXAMIC ACID
     Indication: Pulmonary alveolar haemorrhage
     Route: 042
     Dates: start: 20191216, end: 20191220
  28. CARBAZOCHROME SULFONATE NA [Concomitant]
     Indication: Pneumonia
     Route: 042
     Dates: start: 20191216, end: 20191220
  29. CEFTRIAXONE SODIUM [Concomitant]
     Active Substance: CEFTRIAXONE SODIUM
     Indication: Pneumonia
     Route: 042
     Dates: start: 20191216, end: 20191223
  30. ASCORBIC ACID [Concomitant]
     Active Substance: ASCORBIC ACID
     Indication: Medical diet
     Route: 042
     Dates: start: 20191217, end: 20191219
  31. VITAMEDIN [BENFOTIAMINE;CYANOCOBALAMIN;PYRIDOXINE HYDROCHLORIDE] [Concomitant]
     Indication: Medical diet
     Route: 042
     Dates: start: 20191217, end: 20191219
  32. AUGMENTIN [Concomitant]
     Active Substance: AMOXICILLIN\CLAVULANATE POTASSIUM
     Indication: Pneumonia
     Route: 048
     Dates: start: 20191211, end: 20191216
  33. AMOXICILLIN [Concomitant]
     Active Substance: AMOXICILLIN
     Indication: Pneumonia
     Route: 048
     Dates: start: 20191211, end: 20191216
  34. ACETAMINOPHEN\TRAMADOL HYDROCHLORIDE [Concomitant]
     Active Substance: ACETAMINOPHEN\TRAMADOL HYDROCHLORIDE
     Route: 048
     Dates: end: 20190827
  35. ACETAMINOPHEN\TRAMADOL HYDROCHLORIDE [Concomitant]
     Active Substance: ACETAMINOPHEN\TRAMADOL HYDROCHLORIDE
     Dates: start: 20190828

REACTIONS (9)
  - Pulmonary alveolar haemorrhage [Recovered/Resolved]
  - Pneumonia [Recovered/Resolved]
  - Mycobacterium avium complex infection [Recovering/Resolving]
  - Optic neuropathy [Recovered/Resolved]
  - Off label use [Unknown]
  - Arthralgia [Recovering/Resolving]
  - Product use in unapproved indication [Unknown]
  - Oedema peripheral [Recovering/Resolving]
  - Vertigo positional [Recovering/Resolving]

NARRATIVE: CASE EVENT DATE: 20180517
